FAERS Safety Report 4585154-9 (Version None)
Quarter: 2005Q1

REPORT INFORMATION
  Report Type: 
  Country: None (occurrence: None)
  Receive Date: 20050214
  Receipt Date: 20050131
  Transmission Date: 20050727
  Serious: Yes (Hospitalization)
  Sender: FDA-Public Use
  Company Number: 2004106993

PATIENT
  Age: 61 Year
  Sex: Male
  Weight: 77.1115 kg

DRUGS (5)
  1. AZULFIDINE [Suspect]
     Indication: RHEUMATOID ARTHRITIS
     Dosage: 4000 MG (2000 MG, 1 IN 2 D); ORAL
     Route: 048
     Dates: start: 19700101
  2. PREDNISONE [Suspect]
     Indication: RHEUMATOID ARTHRITIS
     Dosage: 10 MG (10 MG, QD); ORAL
     Route: 048
  3. AZATHIOPRINE [Suspect]
     Indication: RHEUMATOID ARTHRITIS
     Dosage: ORAL
     Route: 048
  4. CETIRIZINE HCL [Concomitant]
  5. MONTELUKAST SODIUM (MONTELUKAST SODIUM) [Concomitant]

REACTIONS (8)
  - CHROMATURIA [None]
  - COLITIS [None]
  - CONDITION AGGRAVATED [None]
  - DEHYDRATION [None]
  - DRUG INEFFECTIVE [None]
  - PANCREATITIS [None]
  - RHEUMATOID ARTHRITIS [None]
  - STRESS [None]
